FAERS Safety Report 18818658 (Version 1)
Quarter: 2021Q1

REPORT INFORMATION
  Report Type: Report from Study
  Country: None (occurrence: US)
  Receive Date: 20210202
  Receipt Date: 20210202
  Transmission Date: 20210419
  Serious: Yes (Hospitalization)
  Sender: FDA-Public Use
  Company Number: US-ABBVIE-20K-163-3581046-00

PATIENT
  Age: 58 Year
  Sex: Female

DRUGS (1)
  1. HUMIRA [Suspect]
     Active Substance: ADALIMUMAB
     Indication: CROHN^S DISEASE
     Route: 058
     Dates: start: 20170820

REACTIONS (9)
  - Oxygen saturation decreased [Unknown]
  - Fall [Recovered/Resolved]
  - Pain in extremity [Not Recovered/Not Resolved]
  - Cough [Not Recovered/Not Resolved]
  - Lung disorder [Unknown]
  - Urinary tract infection [Recovering/Resolving]
  - Sepsis [Not Recovered/Not Resolved]
  - Hip fracture [Recovered/Resolved]
  - Syphilis [Recovering/Resolving]

NARRATIVE: CASE EVENT DATE: 20181126
